FAERS Safety Report 13325861 (Version 1)
Quarter: 2017Q1

REPORT INFORMATION
  Report Type: Report from Study
  Country: US (occurrence: US)
  Receive Date: 20170310
  Receipt Date: 20170310
  Transmission Date: 20170428
  Serious: Yes (Hospitalization)
  Sender: FDA-Public Use
  Company Number: US-VIFOR (INTERNATIONAL) INC.-VIT-2017-02435

PATIENT
  Age: 78 Year
  Sex: Male

DRUGS (2)
  1. VELTASSA [Suspect]
     Active Substance: PATIROMER
     Indication: PRODUCT USED FOR UNKNOWN INDICATION
     Dates: start: 20161209
  2. VELTASSA [Suspect]
     Active Substance: PATIROMER
     Dates: start: 20160301

REACTIONS (2)
  - Urinary tract infection [Unknown]
  - Pneumonia [Unknown]

NARRATIVE: CASE EVENT DATE: 20170222
